FAERS Safety Report 22038492 (Version 2)
Quarter: 2023Q2

REPORT INFORMATION
  Report Type: Spontaneous
  Country: US (occurrence: US)
  Receive Date: 20230227
  Receipt Date: 20230611
  Transmission Date: 20230722
  Serious: No
  Sender: FDA-Public Use
  Company Number: US-SA-SAC20230224000285

PATIENT
  Sex: Male
  Weight: 77.098 kg

DRUGS (1)
  1. CEREZYME [Suspect]
     Active Substance: IMIGLUCERASE
     Indication: Gaucher^s disease
     Dosage: 2400 U, Q3W
     Route: 042
     Dates: start: 20220208

REACTIONS (1)
  - Weight decreased [Unknown]
